FAERS Safety Report 4659883-2 (Version None)
Quarter: 2005Q2

REPORT INFORMATION
  Report Type: 
  Country: None (occurrence: None)
  Receive Date: 20050512
  Receipt Date: 20050118
  Transmission Date: 20051028
  Serious: Yes (Other)
  Sender: FDA-Public Use
  Company Number: PHNR2005AU00468

PATIENT
  Age: 30 Year
  Sex: Female

DRUGS (2)
  1. CLOZARIL [Suspect]
     Indication: SCHIZOPHRENIA
     Dosage: 12.5 - 150 MG, DAILY
     Dates: start: 20041129, end: 20041220
  2. QUETIAPINE FUMARATE [Concomitant]
     Dosage: 400 MG, QD
     Dates: start: 20041217

REACTIONS (5)
  - BLOOD CREATINE PHOSPHOKINASE INCREASED [None]
  - CARDIAC DISORDER [None]
  - MYOCARDITIS [None]
  - THYROXINE DECREASED [None]
  - TROPONIN INCREASED [None]
